FAERS Safety Report 4385091-9 (Version None)
Quarter: 2004Q2

REPORT INFORMATION
  Report Type: 
  Country: None (occurrence: None)
  Receive Date: 20040624
  Receipt Date: 20040624
  Transmission Date: 20050107
  Serious: Yes (Other)
  Sender: FDA-Public Use
  Company Number: None

PATIENT
  Sex: Male

DRUGS (5)
  1. RISPERDAL CONSTA [Suspect]
     Indication: SCHIZOPHRENIA
     Dosage: 25 MG Q 2 WEEKS IM
     Route: 030
     Dates: start: 20040208, end: 20040308
  2. DEPAKOTE [Concomitant]
  3. RISPERIDONE [Concomitant]
  4. BENZTROPINE MESYLATE [Concomitant]
  5. LORAZEPAM [Concomitant]

REACTIONS (1)
  - EXTRAPYRAMIDAL DISORDER [None]
